FAERS Safety Report 5414851-8 (Version None)
Quarter: 2007Q3

REPORT INFORMATION
  Report Type: 
  Country: None (occurrence: None)
  Receive Date: 20070815
  Receipt Date: 20070808
  Transmission Date: 20080115
  Serious: Yes (Other)
  Sender: FDA-Public Use
  Company Number: PHBS2007JP13329

PATIENT
  Age: 54 Year
  Sex: Female

DRUGS (3)
  1. ZOMETA [Suspect]
     Indication: METASTASES TO BONE
     Dosage: 4 MG, UNK
     Route: 042
     Dates: start: 20060818, end: 20070409
  2. FEMARA [Concomitant]
     Dosage: 2.5 MG, UNK
     Route: 048
     Dates: start: 20070710
  3. FARESTON [Concomitant]
     Dosage: 120 MG, UNK
     Route: 048

REACTIONS (3)
  - GINGIVAL BLISTER [None]
  - MASS [None]
  - OSTEONECROSIS [None]
